FAERS Safety Report 5169013-9 (Version None)
Quarter: 2006Q4

REPORT INFORMATION
  Report Type: 
  Country: None (occurrence: None)
  Receive Date: 20061204
  Receipt Date: 20061126
  Transmission Date: 20070319
  Serious: Yes (Hospitalization)
  Sender: FDA-Public Use
  Company Number: 2006144742

PATIENT
  Sex: Female

DRUGS (1)
  1. LISTERINE ANTISEPTIC MOUTHWASH (MENTHOL, METHYL SALICYLATE, EUCALYPTOL [Suspect]
     Indication: ALCOHOL POISONING
     Dosage: 1-2 LITERS DAILY, ORAL
     Route: 048

REACTIONS (8)
  - DIARRHOEA HAEMORRHAGIC [None]
  - DRUG ABUSER [None]
  - FEELING ABNORMAL [None]
  - HALLUCINATION [None]
  - INCORRECT ROUTE OF DRUG ADMINISTRATION [None]
  - NERVOUSNESS [None]
  - SUICIDAL IDEATION [None]
  - VOMITING [None]
